FAERS Safety Report 9154375 (Version 1)
Quarter: 2013Q1

REPORT INFORMATION
  Report Type: Spontaneous
  Country: US (occurrence: None)
  Receive Date: 20130308
  Receipt Date: 20130308
  Transmission Date: 20140127
  Serious: Yes (Death)
  Sender: FDA-Public Use
  Company Number: None

PATIENT
  Age: 60 Year
  Sex: Female
  Weight: 63.5 kg

DRUGS (2)
  1. AMITIZA 24 MCG TAKEDA [Suspect]
     Indication: CONSTIPATION
     Route: 048
     Dates: start: 20120116, end: 20120121
  2. AMITIZA 24 MCG TAKEDA [Suspect]
     Indication: CONSTIPATION
     Route: 048
     Dates: start: 20120116, end: 20120121

REACTIONS (2)
  - Diarrhoea [None]
  - Coma hepatic [None]
